FAERS Safety Report 25318184 (Version 1)
Quarter: 2025Q2

REPORT INFORMATION
  Report Type: Other
  Country: US (occurrence: US)
  Receive Date: 20250515
  Receipt Date: 20250515
  Transmission Date: 20250717
  Serious: Yes (Hospitalization)
  Sender: DEXCEL LTD.
  Company Number: US-DEXPHARM-2025-2978

PATIENT
  Age: 38 Year
  Sex: Female

DRUGS (1)
  1. TOFACITINIB [Suspect]
     Active Substance: TOFACITINIB
     Dosage: TOFACITINIB 10MG TID WAS BEGUN

REACTIONS (2)
  - Diarrhoea [Recovered/Resolved]
  - Malnutrition [Recovered/Resolved]
